FAERS Safety Report 8781507 (Version 5)
Quarter: 2014Q3

REPORT INFORMATION
  Report Type: Spontaneous
  Country: US (occurrence: US)
  Receive Date: 20120913
  Receipt Date: 20140825
  Transmission Date: 20150326
  Serious: Yes (Hospitalization, Other)
  Sender: FDA-Public Use
  Company Number: US-009507513-1209USA003603

PATIENT
  Sex: Female
  Weight: 77.91 kg

DRUGS (1)
  1. NUVARING [Suspect]
     Active Substance: ETHINYL ESTRADIOL\ETONOGESTREL
     Indication: CONTRACEPTION
     Dosage: UNK
     Route: 067
     Dates: start: 20050929, end: 20070921

REACTIONS (10)
  - Migraine [Unknown]
  - Cardiolipin antibody [Unknown]
  - Emotional disorder [Unknown]
  - Gastrooesophageal reflux disease [Unknown]
  - Subcutaneous haematoma [Unknown]
  - Bacterial vaginosis [Unknown]
  - Hypercoagulation [Unknown]
  - Pulmonary embolism [Unknown]
  - Localised infection [Unknown]
  - Treatment noncompliance [Unknown]

NARRATIVE: CASE EVENT DATE: 2007
